FAERS Safety Report 4736038-4 (Version None)
Quarter: 2005Q3

REPORT INFORMATION
  Report Type: 
  Country: None (occurrence: None)
  Receive Date: 20050805
  Receipt Date: 20050518
  Transmission Date: 20060218
  Serious: Yes (Hospitalization)
  Sender: FDA-Public Use
  Company Number: US-MERCK-0505USA02268

PATIENT
  Age: 70 Year
  Sex: Female
  Weight: 68 kg

DRUGS (12)
  1. VIOXX [Suspect]
     Indication: PAIN IN EXTREMITY
     Route: 048
     Dates: start: 20010814, end: 20020517
  2. ASPIRIN [Concomitant]
     Route: 065
     Dates: start: 19950101
  3. NORVASC [Concomitant]
     Route: 065
  4. AVANDIA [Concomitant]
     Route: 065
  5. SYNTHROID [Concomitant]
     Indication: THYROID DISORDER
     Route: 065
     Dates: start: 19550101
  6. ZYRTEC [Concomitant]
     Route: 065
  7. LIPITOR [Concomitant]
     Route: 065
  8. IBUPROFEN [Concomitant]
     Indication: PAIN
     Route: 065
     Dates: start: 19580101
  9. PREMARIN [Concomitant]
     Indication: HOT FLUSH
     Route: 065
     Dates: start: 19950101, end: 20010101
  10. MULTIVITAMIN [Concomitant]
     Route: 065
     Dates: start: 19850101
  11. ZOLOFT [Concomitant]
     Route: 065
     Dates: start: 20010101, end: 20050330
  12. VITAMIN E [Concomitant]
     Route: 065
     Dates: start: 19850101

REACTIONS (4)
  - LIMB OPERATION [None]
  - MYOCARDIAL INFARCTION [None]
  - OEDEMA PERIPHERAL [None]
  - SLEEP APNOEA SYNDROME [None]
